FAERS Safety Report 7750681-X (Version None)
Quarter: 2011Q3

REPORT INFORMATION
  Report Type: 
  Country: None (occurrence: None)
  Receive Date: 20110912
  Receipt Date: 20110827
  Transmission Date: 20111222
  Serious: Yes (Other)
  Sender: FDA-Public Use
  Company Number: 2011NA000074

PATIENT
  Age: 25 Year
  Sex: Female

DRUGS (5)
  1. DICLOFENAC SODIUM [Suspect]
     Indication: PRODUCT USED FOR UNKNOWN INDICATION
     Dosage: TOP
     Route: 061
  2. TOBRAMYCIN [Suspect]
     Indication: PRODUCT USED FOR UNKNOWN INDICATION
  3. RIBOFLAVIN CAP [Suspect]
     Indication: KERATOCONUS
     Dosage: 0.1 PCT;EVERY 3 MINUTES;IO
     Route: 031
  4. DEXTRAN 40 [Suspect]
     Dosage: ;EVERY 3 MINUTES; IO
     Route: 031
  5. DEXAMETHASONE [Suspect]
     Indication: PRODUCT USED FOR UNKNOWN INDICATION

REACTIONS (2)
  - CORNEAL INFILTRATES [None]
  - VISUAL ACUITY REDUCED [None]
